FAERS Safety Report 10429896 (Version 1)
Quarter: 2014Q3

REPORT INFORMATION
  Report Type: Spontaneous
  Country: US (occurrence: None)
  Receive Date: 20140903
  Receipt Date: 20140903
  Transmission Date: 20150326
  Serious: No
  Sender: FDA-Public Use
  Company Number: None

PATIENT
  Sex: Male
  Weight: 77.11 kg

DRUGS (19)
  1. LIVALO [Suspect]
     Active Substance: PITAVASTATIN CALCIUM
  2. LEVETHROXINE [Concomitant]
  3. CARVEDILOL. [Concomitant]
     Active Substance: CARVEDILOL
  4. LISINOPRIL. [Concomitant]
     Active Substance: LISINOPRIL
  5. PHENYTOIN SODIUM. [Concomitant]
     Active Substance: PHENYTOIN SODIUM
  6. VITAMINS [Concomitant]
     Active Substance: VITAMINS
  7. ATORVASTATIN [Suspect]
     Active Substance: ATORVASTATIN
  8. SPIRIVA [Concomitant]
     Active Substance: TIOTROPIUM BROMIDE MONOHYDRATE
  9. ASPIRIN. [Concomitant]
     Active Substance: ASPIRIN
  10. TAMSULOSIN [Concomitant]
     Active Substance: TAMSULOSIN
  11. LORATODINE [Concomitant]
  12. CRESTOR [Suspect]
     Active Substance: ROSUVASTATIN CALCIUM
  13. CLONAZEPATE [Concomitant]
  14. SIMVASTATIN. [Suspect]
     Active Substance: SIMVASTATIN
     Indication: BLOOD CHOLESTEROL INCREASED
     Dates: start: 2014
  15. SYMBICONT [Concomitant]
  16. SERTILINE [Concomitant]
  17. EYE VITAMIN [Concomitant]
  18. STOOL SOFTNER (DOCUSATE SODIUM) [Concomitant]
  19. COENZYME Q10 [Concomitant]
     Active Substance: UBIDECARENONE

REACTIONS (4)
  - Muscular weakness [None]
  - Pain in extremity [None]
  - Peripheral swelling [None]
  - Diarrhoea [None]

NARRATIVE: CASE EVENT DATE: 2014
